FAERS Safety Report 5704103-0 (Version None)
Quarter: 2008Q2

REPORT INFORMATION
  Report Type: 
  Country: None (occurrence: None)
  Receive Date: 20080414
  Receipt Date: 20080324
  Transmission Date: 20081010
  Serious: No
  Sender: FDA-Public Use
  Company Number: US-BAYER-200818704NA

PATIENT
  Age: 43 Year
  Sex: Female
  Weight: 64 kg

DRUGS (1)
  1. ULTRAVIST 300 [Suspect]
     Indication: COMPUTERISED TOMOGRAM
     Dosage: TOTAL DAILY DOSE: 90 ML  UNIT DOSE: 100 ML
     Route: 042
     Dates: start: 20080317, end: 20080317

REACTIONS (2)
  - LIP SWELLING [None]
  - ORAL PRURITUS [None]
